FAERS Safety Report 23871128 (Version 1)
Quarter: 2024Q2

REPORT INFORMATION
  Report Type: Report from Study
  Country: US (occurrence: US)
  Receive Date: 20240518
  Receipt Date: 20240518
  Transmission Date: 20240716
  Serious: Yes (Other)
  Sender: FDA-Public Use
  Company Number: US-ABBVIE-5762763

PATIENT
  Sex: Female

DRUGS (1)
  1. SYNTHROID [Suspect]
     Active Substance: LEVOTHYROXINE SODIUM
     Indication: Product used for unknown indication
     Dosage: FORM STRENGTH:112 MCG
     Route: 048
     Dates: end: 202404

REACTIONS (3)
  - Malignant neoplasm progression [Unknown]
  - Somnolence [Unknown]
  - Thyroidectomy [Unknown]
